FAERS Safety Report 9237608 (Version 1)
Quarter: 2013Q2

REPORT INFORMATION
  Report Type: Spontaneous
  Country: PT (occurrence: PT)
  Receive Date: 20130418
  Receipt Date: 20130418
  Transmission Date: 20140414
  Serious: Yes (Other)
  Sender: FDA-Public Use
  Company Number: PT-PFIZER INC-2013114537

PATIENT
  Age: 50 Year
  Sex: Female

DRUGS (8)
  1. REVATIO [Suspect]
     Indication: PULMONARY HYPERTENSION
     Dosage: 3 DF (3X20MG), DAILY
     Route: 048
     Dates: start: 200912
  2. REVATIO [Suspect]
     Dosage: 40 MG, 3X/DAY
     Route: 048
  3. REVATIO [Suspect]
     Dosage: 9 DF (9X20MG), DAILY
     Route: 048
     Dates: start: 2010
  4. IVABRADINE [Concomitant]
     Dosage: 1DF 7.5MG + 1DF 5MG
     Route: 048
     Dates: start: 2009
  5. LOSARTAN POTASSIUM W/HYDROCHLOROTHIAZIDE [Concomitant]
     Dosage: 1 DF (50MG+12.5MG)
     Route: 048
     Dates: start: 2009
  6. FUROSEMIDE [Concomitant]
     Dosage: 40 MG, UNK
     Route: 048
     Dates: start: 2009
  7. WARFARIN [Concomitant]
     Dosage: UNK
     Dates: start: 2009
  8. AMBRISENTAN [Concomitant]
     Dosage: 5 MG, DAILY
     Dates: start: 2010

REACTIONS (10)
  - Pulmonary hypertension [Recovered/Resolved]
  - Drug ineffective [Recovered/Resolved]
  - Overdose [Unknown]
  - Optic disc haemorrhage [Recovered/Resolved]
  - Retinal haemorrhage [Unknown]
  - Glaucoma [Unknown]
  - Glaucomatous optic disc atrophy [Unknown]
  - Optic disc vascular disorder [Unknown]
  - Scotoma [Unknown]
  - Fatigue [Unknown]
